FAERS Safety Report 7360452-4 (Version None)
Quarter: 2011Q1

REPORT INFORMATION
  Report Type: 
  Country: None (occurrence: None)
  Receive Date: 20110318
  Receipt Date: 20110308
  Transmission Date: 20110831
  Serious: Yes (Hospitalization, Other)
  Sender: FDA-Public Use
  Company Number: US-CELGENEUS-163-21880-11011007

PATIENT
  Sex: Male

DRUGS (3)
  1. REVLIMID [Suspect]
     Indication: MULTIPLE MYELOMA
     Dosage: 10 MILLIGRAM
     Route: 048
     Dates: start: 20101110, end: 20110215
  2. ASPIRIN [Concomitant]
     Route: 065
  3. DECADRON [Concomitant]
     Route: 065

REACTIONS (1)
  - INTESTINAL ADENOCARCINOMA [None]
